FAERS Safety Report 25726174 (Version 1)
Quarter: 2025Q3

REPORT INFORMATION
  Report Type: Spontaneous
  Country: US (occurrence: None)
  Receive Date: 20250824
  Receipt Date: 20250824
  Transmission Date: 20251020
  Serious: Yes (Other)
  Sender: FDA-CTU
  Company Number: None

PATIENT
  Age: 50 Year
  Sex: Female
  Weight: 54 kg

DRUGS (5)
  1. NEURONTIN [Suspect]
     Active Substance: GABAPENTIN
     Indication: Pain
     Dates: start: 20200105, end: 20250601
  2. NEURONTIN [Suspect]
     Active Substance: GABAPENTIN
     Indication: Pain
  3. TYLENOL [Concomitant]
     Active Substance: ACETAMINOPHEN
  4. CELEBREX [Concomitant]
     Active Substance: CELECOXIB
  5. UNSPECIFIED INGREDIENT [Concomitant]
     Active Substance: UNSPECIFIED INGREDIENT

REACTIONS (6)
  - Brain fog [None]
  - Fatigue [None]
  - Memory impairment [None]
  - Dental caries [None]
  - Withdrawal syndrome [None]
  - Pain [None]

NARRATIVE: CASE EVENT DATE: 20250601
